FAERS Safety Report 12579152 (Version 2)
Quarter: 2016Q3

REPORT INFORMATION
  Report Type: Spontaneous
  Country: US (occurrence: US)
  Receive Date: 20160721
  Receipt Date: 20160915
  Transmission Date: 20161109
  Serious: Yes (Other)
  Sender: FDA-Public Use
  Company Number: US-CELGENEUS-USA-2016073992

PATIENT

DRUGS (7)
  1. EPO [Concomitant]
     Active Substance: ERYTHROPOIETIN
     Indication: ANAEMIA
     Dosage: 300 MICROGRAM
     Route: 065
     Dates: start: 20150205, end: 201607
  2. G-CSF [Concomitant]
     Active Substance: GRANULOCYTE COLONY-STIMULATING FACTOR NOS
     Indication: NEUTROPENIA
     Route: 065
     Dates: start: 20150430, end: 201607
  3. REVLIMID [Suspect]
     Active Substance: LENALIDOMIDE
     Indication: MYELODYSPLASTIC SYNDROME
     Route: 048
     Dates: start: 20160301
  4. REVLIMID [Suspect]
     Active Substance: LENALIDOMIDE
     Route: 048
     Dates: end: 20160716
  5. REVLIMID [Suspect]
     Active Substance: LENALIDOMIDE
     Route: 048
  6. REVLIMID [Suspect]
     Active Substance: LENALIDOMIDE
     Route: 048
     Dates: end: 20160810
  7. REVLIMID [Suspect]
     Active Substance: LENALIDOMIDE
     Dosage: 75 MILLIGRAM/SQ. METER
     Route: 048
     Dates: start: 20160508, end: 20160618

REACTIONS (1)
  - Thrombocytopenia [Recovering/Resolving]

NARRATIVE: CASE EVENT DATE: 20160301
